FAERS Safety Report 26015876 (Version 1)
Quarter: 2025Q4

REPORT INFORMATION
  Report Type: Spontaneous
  Country: US (occurrence: US)
  Receive Date: 20251109
  Receipt Date: 20251109
  Transmission Date: 20260118
  Serious: No
  Sender: ABBVIE
  Company Number: US-ABBVIE-6524697

PATIENT
  Age: 67 Year
  Sex: Male
  Weight: 86.182 kg

DRUGS (4)
  1. VYALEV [Suspect]
     Active Substance: FOSCARBIDOPA\FOSLEVODOPA
     Indication: Parkinson^s disease
     Dosage: FREQUENCY TEXT: CONTINUOUS 24-HOUR INFUSION
     Route: 058
     Dates: start: 20250718
  2. MYRBETRIQ [Concomitant]
     Active Substance: MIRABEGRON
     Indication: Urinary retention
  3. METRONIDAZOLE [Suspect]
     Active Substance: METRONIDAZOLE
     Indication: Intestinal metaplasia
     Route: 065
     Dates: start: 2025, end: 202510
  4. TETRACYCLINE [Suspect]
     Active Substance: TETRACYCLINE
     Indication: Intestinal metaplasia
     Route: 065
     Dates: start: 2025, end: 202510

REACTIONS (6)
  - Aphonia [Recovering/Resolving]
  - Stoma site infection [Recovered/Resolved]
  - Helicobacter infection [Unknown]
  - Intestinal metaplasia [Unknown]
  - Dysphonia [Recovering/Resolving]
  - Oropharyngeal pain [Recovered/Resolved]

NARRATIVE: CASE EVENT DATE: 20250805
